FAERS Safety Report 13564484 (Version 4)
Quarter: 2017Q3

REPORT INFORMATION
  Report Type: Spontaneous
  Country: JP (occurrence: JP)
  Receive Date: 20170519
  Receipt Date: 20170804
  Transmission Date: 20171127
  Serious: Yes (Other)
  Sender: FDA-Public Use
  Company Number: JP-009507513-1704JPN000874J

PATIENT
  Age: 40 Year
  Sex: Male

DRUGS (4)
  1. GRAZYNA TABLETS 50MG [Suspect]
     Active Substance: GRAZOPREVIR
     Dosage: 100 MG, QD
     Route: 048
     Dates: start: 20170411
  2. ERELSA TABLETS 50MG [Suspect]
     Active Substance: ELBASVIR
     Indication: CHRONIC HEPATITIS C
     Dosage: 50 MG, QD
     Route: 048
     Dates: start: 20170405, end: 20170408
  3. ERELSA TABLETS 50MG [Suspect]
     Active Substance: ELBASVIR
     Dosage: 50 MG, QD
     Route: 048
     Dates: start: 20170411
  4. GRAZYNA TABLETS 50MG [Suspect]
     Active Substance: GRAZOPREVIR
     Indication: CHRONIC HEPATITIS C
     Dosage: 100 MG, QD
     Route: 048
     Dates: start: 20170405, end: 20170408

REACTIONS (5)
  - White blood cell count increased [Recovered/Resolved]
  - Pharyngitis [Recovered/Resolved]
  - Haematochezia [Recovering/Resolving]
  - Diarrhoea [Recovering/Resolving]
  - Vomiting [Recovering/Resolving]

NARRATIVE: CASE EVENT DATE: 20170406
